FAERS Safety Report 20553910 (Version 2)
Quarter: 2022Q3

REPORT INFORMATION
  Report Type: Spontaneous
  Country: US (occurrence: US)
  Receive Date: 20220304
  Receipt Date: 20220916
  Transmission Date: 20221027
  Serious: No
  Sender: FDA-Public Use
  Company Number: US-009507513-2203USA001140

PATIENT
  Sex: Female

DRUGS (3)
  1. PRIMAXIN IV [Suspect]
     Active Substance: CILASTATIN SODIUM\IMIPENEM
     Dosage: DOSE DESCRIPTION: SINGLE DOSE VIAL (SDV)
     Route: 042
  2. PRIMAXIN IV [Suspect]
     Active Substance: CILASTATIN SODIUM\IMIPENEM
     Dosage: FORMULATION: SINGLE DOSE VIAL (SDV)
     Route: 042
  3. INVANZ [Suspect]
     Active Substance: ERTAPENEM SODIUM
     Dosage: FORMULATION: SINGLE DOSE VIAL (SDV)

REACTIONS (1)
  - Drug hypersensitivity [Unknown]
